FAERS Safety Report 6621516-3 (Version None)
Quarter: 2010Q1

REPORT INFORMATION
  Report Type: 
  Country: None (occurrence: None)
  Receive Date: 20100223
  Receipt Date: 20091223
  Transmission Date: 20100710
  Serious: Yes (Other)
  Sender: FDA-Public Use
  Company Number: 003884

PATIENT
  Sex: Female

DRUGS (16)
  1. CIMZIA [Suspect]
     Indication: CROHN'S DISEASE
     Dosage: (SUBCUTANEOUS)
     Route: 058
     Dates: start: 20091106
  2. MESALAMINE [Concomitant]
  3. CHOLESTYRAMINE [Concomitant]
  4. LOMOTIL [Concomitant]
  5. PEPCID [Concomitant]
  6. DETROL LA [Concomitant]
  7. ADVAIR DISKUS 100/50 [Concomitant]
  8. FERROUS SULFATE TAB [Concomitant]
  9. PAXIL [Concomitant]
  10. XANAX [Concomitant]
  11. CALCIUM [Concomitant]
  12. DAILY MULTIVITAMIN [Concomitant]
  13. VITAMIN D [Concomitant]
  14. VITAMIN B12 NOS [Concomitant]
  15. ZYRTEC [Concomitant]
  16. REGLAN [Concomitant]

REACTIONS (1)
  - TONSILLITIS [None]
